FAERS Safety Report 13362798 (Version 1)
Quarter: 2017Q1

REPORT INFORMATION
  Report Type: Spontaneous
  Country: US (occurrence: US)
  Receive Date: 20170323
  Receipt Date: 20170323
  Transmission Date: 20170429
  Serious: No
  Sender: FDA-Public Use
  Company Number: US-ASTRAZENECA-2017SE30069

PATIENT
  Sex: Female

DRUGS (3)
  1. IBRANCE [Suspect]
     Active Substance: PALBOCICLIB
     Indication: BREAST CANCER FEMALE
     Route: 048
     Dates: start: 20160822
  2. IBRANCE [Suspect]
     Active Substance: PALBOCICLIB
     Indication: BREAST CANCER FEMALE
     Route: 048
     Dates: start: 20160713, end: 20160821
  3. ANASTROZOLE. [Suspect]
     Active Substance: ANASTROZOLE
     Route: 048

REACTIONS (11)
  - Epistaxis [Unknown]
  - Vision blurred [Unknown]
  - White blood cell count decreased [Unknown]
  - Bone pain [Unknown]
  - Dyspnoea [Unknown]
  - Platelet count decreased [Unknown]
  - Thrombocytopenia [None]
  - Hypertension [Unknown]
  - Dry eye [Unknown]
  - Diarrhoea [Unknown]
  - Anaemia [None]
